FAERS Safety Report 17372841 (Version 2)
Quarter: 2020Q1

REPORT INFORMATION
  Report Type: Spontaneous
  Country: FR (occurrence: FR)
  Receive Date: 20200205
  Receipt Date: 20200219
  Transmission Date: 20200409
  Serious: Yes (Hospitalization)
  Sender: FDA-Public Use
  Company Number: FR-TEVA-2020-FR-1181237

PATIENT
  Age: 69 Year
  Sex: Male
  Weight: 70 kg

DRUGS (10)
  1. BIPRETERAX [Concomitant]
     Active Substance: INDAPAMIDE\PERINDOPRIL
     Dosage: 1 DOSAGE FORMS
     Route: 048
  2. FLUOROURACILE [Suspect]
     Active Substance: FLUOROURACIL
     Indication: ADENOCARCINOMA GASTRIC
     Dosage: 156 MG
     Route: 042
     Dates: start: 20191218
  3. HEPARINE DE FAIBLE MASSE MOLECULAIRE ((MAMMIFERE/PORC/MUQUEUSE INTESTI [Concomitant]
  4. INSULINE [Concomitant]
     Active Substance: INSULIN NOS
  5. ALVITYL [Concomitant]
     Active Substance: VITAMINS
     Dosage: 30 ML PER DAY
  6. DOCETAXEL. [Suspect]
     Active Substance: DOCETAXEL
     Indication: ADENOCARCINOMA GASTRIC
     Dosage: 92 MG
     Route: 042
     Dates: start: 20191218
  7. OXALIPLATINE [Suspect]
     Active Substance: OXALIPLATIN
     Indication: ADENOCARCINOMA GASTRIC
     Dosage: 156 MG
     Route: 042
     Dates: start: 20191218
  8. PANTOPRAZOLE [Concomitant]
     Active Substance: PANTOPRAZOLE
  9. STAGID [Concomitant]
     Active Substance: METFORMIN PAMOATE
     Route: 048
  10. TRAVATAN [Concomitant]
     Active Substance: TRAVOPROST
     Route: 047

REACTIONS (4)
  - Diarrhoea [Recovered/Resolved]
  - Gastrointestinal necrosis [Recovered/Resolved]
  - Neutropenia [Recovered/Resolved]
  - Hypovolaemic shock [Recovered/Resolved]

NARRATIVE: CASE EVENT DATE: 201912
